FAERS Safety Report 8838556 (Version 1)
Quarter: 2012Q4

REPORT INFORMATION
  Report Type: 
  Country: DE (occurrence: DE)
  Receive Date: 20121012
  Receipt Date: 20121012
  Transmission Date: 20130627
  Serious: Yes (Death, Life-Threatening)
  Sender: FDA-Public Use
  Company Number: DE-B.I. PHARMACEUTICALS,INC./RIDGEFIELD-2012-DE-02177DE

PATIENT
  Age: 79 Year
  Sex: Male
  Weight: 80 kg

DRUGS (11)
  1. PRADAXA [Suspect]
     Indication: ATRIAL FIBRILLATION
     Dosage: 75 mg
  2. PRADAXA [Suspect]
     Dosage: 110 mg
  3. KREON [Concomitant]
     Dosage: 25000 U
  4. URSOFALK [Concomitant]
     Dosage: 250 mg
  5. DIOVAN [Concomitant]
     Dosage: 160 mg
  6. HCT [Concomitant]
     Dosage: 12.5 mg
  7. AMLODIPIN [Concomitant]
     Dosage: 5 mg
  8. ESOMEPRAZOL [Concomitant]
     Dosage: 20 mg
  9. NEPRESOL [Concomitant]
  10. MCP [Concomitant]
     Dosage: 20 anz
  11. REKAWAN [Concomitant]

REACTIONS (3)
  - Cerebral ischaemia [Fatal]
  - Haemorrhage intracranial [Fatal]
  - Respiratory failure [Fatal]
